FAERS Safety Report 7373164-8 (Version None)
Quarter: 2011Q1

REPORT INFORMATION
  Report Type: 
  Country: None (occurrence: None)
  Receive Date: 20110324
  Receipt Date: 20110322
  Transmission Date: 20110831
  Serious: Yes (Other)
  Sender: FDA-Public Use
  Company Number: US-CEPHALON-2010004605

PATIENT
  Sex: Male
  Weight: 91 kg

DRUGS (7)
  1. WARFARIN SODIUM [Concomitant]
     Dates: start: 20060101
  2. PROVIGIL [Suspect]
     Indication: SOMNOLENCE
     Route: 048
     Dates: start: 20070101, end: 20100301
  3. FUROSEMIDE [Concomitant]
     Dates: start: 20060101
  4. DIGOXIN [Concomitant]
     Dates: start: 20060101
  5. SIMVASTATIN [Concomitant]
     Dates: start: 20060101
  6. CARVEDILOL [Concomitant]
     Dates: start: 20060101
  7. ACETAMINOPHEN AND HYDROCODONE BITARTRATE [Concomitant]
     Dates: start: 20050101

REACTIONS (1)
  - TYPE 2 DIABETES MELLITUS [None]
